FAERS Safety Report 5579175-7 (Version None)
Quarter: 2008Q1

REPORT INFORMATION
  Report Type: 
  Country: None (occurrence: None)
  Receive Date: 20080102
  Receipt Date: 20071228
  Transmission Date: 20080703
  Serious: Yes (Hospitalization)
  Sender: FDA-Public Use
  Company Number: A0700753A

PATIENT
  Age: 23 Year
  Sex: Female

DRUGS (7)
  1. LAMICTAL [Suspect]
     Indication: LENNOX-GASTAUT SYNDROME
     Route: 048
     Dates: start: 20020101
  2. MICRONOR [Suspect]
     Dates: start: 20071101
  3. KEPPRA [Concomitant]
  4. FEBRECTOL [Concomitant]
  5. CARBATROL [Concomitant]
  6. VALIUM [Concomitant]
  7. FENOBARBITOL [Concomitant]

REACTIONS (7)
  - CONVULSION [None]
  - HYPERVIGILANCE [None]
  - NAUSEA [None]
  - PETIT MAL EPILEPSY [None]
  - RETCHING [None]
  - THERAPEUTIC RESPONSE UNEXPECTED [None]
  - VOMITING [None]
